FAERS Safety Report 25884292 (Version 1)
Quarter: 2025Q4

REPORT INFORMATION
  Report Type: Spontaneous
  Country: US (occurrence: None)
  Receive Date: 20251003
  Receipt Date: 20251003
  Transmission Date: 20260118
  Serious: Yes (Disabling, Other)
  Sender: FDA-CTU
  Company Number: None

PATIENT
  Age: 70 Year
  Sex: Female
  Weight: 83.25 kg

DRUGS (1)
  1. PROLIA [Suspect]
     Active Substance: DENOSUMAB
     Indication: Osteoporosis
     Dosage: OTHER ROUTE : SUBCUTANEOUS INJECTION;?
     Route: 050

REACTIONS (4)
  - Arthralgia [None]
  - Gait disturbance [None]
  - Stress fracture [None]
  - Tibia fracture [None]

NARRATIVE: CASE EVENT DATE: 20250515
